FAERS Safety Report 19614140 (Version 1)
Quarter: 2021Q3

REPORT INFORMATION
  Report Type: Spontaneous
  Country: US (occurrence: US)
  Receive Date: 20210726
  Receipt Date: 20210726
  Transmission Date: 20211014
  Serious: Yes (Hospitalization)
  Sender: FDA-Public Use
  Company Number: None

PATIENT
  Age: 71 Year
  Sex: Male

DRUGS (2)
  1. ERLEADA [Suspect]
     Active Substance: APALUTAMIDE
     Indication: METASTASIS
     Route: 048
     Dates: start: 20200730
  2. ERLEADA [Suspect]
     Active Substance: APALUTAMIDE
     Indication: BONE CANCER
     Route: 048
     Dates: start: 20200730

REACTIONS (4)
  - Hypertension [None]
  - Medical procedure [None]
  - Injection [None]
  - Hot flush [None]

NARRATIVE: CASE EVENT DATE: 20210101
